FAERS Safety Report 5569674-6 (Version None)
Quarter: 2007Q4

REPORT INFORMATION
  Report Type: 
  Country: None (occurrence: None)
  Receive Date: 20071220
  Receipt Date: 20071210
  Transmission Date: 20080405
  Serious: Yes (Hospitalization)
  Sender: FDA-Public Use
  Company Number: B0500290A

PATIENT
  Age: 89 Year
  Sex: Male

DRUGS (14)
  1. AUGMENTIN '125' [Suspect]
     Route: 048
     Dates: start: 20070622
  2. ALLOPURINOL [Suspect]
     Indication: DRUG USE FOR UNKNOWN INDICATION
     Route: 048
     Dates: start: 20070530, end: 20070628
  3. TAVANIC [Suspect]
     Indication: BRONCHITIS
     Dosage: 500MG PER DAY
     Route: 042
     Dates: start: 20070625
  4. ROCEPHIN [Suspect]
     Dosage: 1G PER DAY
     Route: 042
     Dates: start: 20070625
  5. INEXIUM [Concomitant]
     Route: 065
  6. AMIODARONE [Concomitant]
     Route: 065
  7. RAMIPRIL [Concomitant]
     Route: 065
  8. LEXOMIL [Concomitant]
     Route: 065
  9. STILNOX [Concomitant]
     Route: 065
  10. BURINEX [Concomitant]
     Route: 065
  11. PLAVIX [Concomitant]
     Route: 065
  12. LEVOTHYROX [Concomitant]
     Route: 065
  13. TRAMADOL HCL [Concomitant]
     Route: 065
  14. NITRODERM [Concomitant]
     Route: 065
     Dates: start: 20070530

REACTIONS (4)
  - GENERAL PHYSICAL HEALTH DETERIORATION [None]
  - PURPURA [None]
  - RASH [None]
  - SKIN LESION [None]
